FAERS Safety Report 7580121-5 (Version None)
Quarter: 2011Q2

REPORT INFORMATION
  Report Type: 
  Country: None (occurrence: None)
  Receive Date: 20110629
  Receipt Date: 20110624
  Transmission Date: 20111010
  Serious: Yes (Other)
  Sender: FDA-Public Use
  Company Number: CA-ELI_LILLY_AND_COMPANY-CA201106007103

PATIENT
  Sex: Male

DRUGS (2)
  1. CRESTOR [Concomitant]
  2. ZYPREXA ZYDIS [Suspect]
     Dosage: 10 MG, QD
     Dates: start: 20040615

REACTIONS (6)
  - ELECTROCARDIOGRAM ABNORMAL [None]
  - HYPERGLYCAEMIA [None]
  - DIABETES MELLITUS [None]
  - LEUKOPENIA [None]
  - NEUROLEPTIC MALIGNANT SYNDROME [None]
  - EYE DISORDER [None]
